FAERS Safety Report 13594605 (Version 2)
Quarter: 2017Q3

REPORT INFORMATION
  Report Type: Spontaneous
  Country: GB (occurrence: GB)
  Receive Date: 20170530
  Receipt Date: 20170710
  Transmission Date: 20171127
  Serious: Yes (Death, Hospitalization)
  Sender: FDA-Public Use
  Company Number: GB-TORRENT-00015305

PATIENT
  Age: 46 Year
  Sex: Male

DRUGS (6)
  1. OMEPRAZOLE. [Concomitant]
     Active Substance: OMEPRAZOLE
  2. SERTRALINE [Concomitant]
     Active Substance: SERTRALINE HYDROCHLORIDE
  3. OLANZAPINE. [Suspect]
     Active Substance: OLANZAPINE
  4. PARACETAMOL [Concomitant]
     Active Substance: ACETAMINOPHEN
  5. OXYCODONE [Concomitant]
     Active Substance: OXYCODONE
  6. CELECOXIB. [Suspect]
     Active Substance: CELECOXIB

REACTIONS (4)
  - Pulmonary embolism [Fatal]
  - Respiratory failure [Fatal]
  - Syncope [Recovered/Resolved]
  - Chest pain [Unknown]

NARRATIVE: CASE EVENT DATE: 20170503
